FAERS Safety Report 15783075 (Version 3)
Quarter: 2019Q1

REPORT INFORMATION
  Report Type: Spontaneous
  Country: US (occurrence: US)
  Receive Date: 20190102
  Receipt Date: 20190204
  Transmission Date: 20190417
  Serious: Yes (Hospitalization)
  Sender: FDA-Public Use
  Company Number: US-CARDINAL HEALTH 414, LLC-2060769

PATIENT
  Age: 69 Year
  Sex: Female
  Weight: 64 kg

DRUGS (2)
  1. REGADENOSON [Suspect]
     Active Substance: REGADENOSON
     Dates: start: 20181211, end: 20181211
  2. TECHNETIUM TC-99M SESTAMIBI KIT [Suspect]
     Active Substance: TECHNETIUM TC-99M SESTAMIBI
     Indication: SCAN MYOCARDIAL PERFUSION
     Route: 042
     Dates: start: 20181211, end: 20181211

REACTIONS (5)
  - Off label use [Recovered/Resolved]
  - Sinus tachycardia [Recovered/Resolved]
  - Tachypnoea [Recovered/Resolved]
  - Chest discomfort [Recovered/Resolved]
  - Anaphylactic reaction [Recovered/Resolved]

NARRATIVE: CASE EVENT DATE: 20181211
